FAERS Safety Report 16736545 (Version 1)
Quarter: 2019Q3

REPORT INFORMATION
  Report Type: Report from Study
  Country: TR (occurrence: TR)
  Receive Date: 20190823
  Receipt Date: 20190823
  Transmission Date: 20191005
  Serious: Yes (Death)
  Sender: FDA-Public Use
  Company Number: TR-PFIZER INC-2019364359

PATIENT

DRUGS (1)
  1. DACOMITINIB [Suspect]
     Active Substance: DACOMITINIB

REACTIONS (1)
  - Death [Fatal]
